FAERS Safety Report 5261922-5 (Version None)
Quarter: 2007Q1

REPORT INFORMATION
  Report Type: 
  Country: None (occurrence: None)
  Receive Date: 20070308
  Receipt Date: 20070301
  Transmission Date: 20070707
  Serious: Yes (Hospitalization)
  Sender: FDA-Public Use
  Company Number: 163-21880-07030152

PATIENT
  Age: 70 Year
  Sex: Female

DRUGS (1)
  1. 02 [Suspect]
     Indication: MULTIPLE MYELOMA
     Dosage: 25 MG, 1 IN 1 D , ORAL
     Route: 048
     Dates: start: 20070206, end: 20070201

REACTIONS (1)
  - LOWER LIMB FRACTURE [None]
